FAERS Safety Report 7341105-5 (Version None)
Quarter: 2011Q1

REPORT INFORMATION
  Report Type: 
  Country: None (occurrence: None)
  Receive Date: 20110309
  Receipt Date: 20101007
  Transmission Date: 20110831
  Serious: Yes (Hospitalization)
  Sender: FDA-Public Use
  Company Number: A0886478A

PATIENT
  Age: 54 Year
  Sex: Female

DRUGS (1)
  1. AVANDIA [Suspect]
     Dosage: 2MG PER DAY
     Route: 048
     Dates: start: 20070101, end: 20100219

REACTIONS (7)
  - WEIGHT INCREASED [None]
  - OXYGEN SUPPLEMENTATION [None]
  - GAIT DISTURBANCE [None]
  - CARDIAC FAILURE CONGESTIVE [None]
  - WALKING AID USER [None]
  - MULTIPLE ALLERGIES [None]
  - DYSPNOEA [None]
